FAERS Safety Report 12653251 (Version 2)
Quarter: 2016Q3

REPORT INFORMATION
  Report Type: Spontaneous
  Country: CH (occurrence: CH)
  Receive Date: 20160815
  Receipt Date: 20160904
  Transmission Date: 20161109
  Serious: Yes (Life-Threatening, Hospitalization, Other)
  Sender: FDA-Public Use
  Company Number: PHHY2016CH110665

PATIENT
  Age: 45 Year
  Sex: Female

DRUGS (3)
  1. TAFINLAR [Suspect]
     Active Substance: DABRAFENIB MESYLATE
     Indication: METASTATIC MALIGNANT MELANOMA
     Dosage: 150 MG, BID
     Route: 048
     Dates: start: 20160709, end: 20160808
  2. NOREPINEPHRINE [Concomitant]
     Active Substance: NOREPINEPHRINE\NOREPINEPHRINE BITARTRATE
     Indication: PRODUCT USED FOR UNKNOWN INDICATION
     Dosage: UNK
     Route: 065
     Dates: start: 20160809
  3. MEKINIST [Suspect]
     Active Substance: TRAMETINIB DIMETHYL SULFOXIDE
     Indication: METASTATIC MALIGNANT MELANOMA
     Dosage: 2 MG, QD
     Route: 048
     Dates: start: 20160714, end: 20160808

REACTIONS (24)
  - Pyrexia [Unknown]
  - Hypotonia [Unknown]
  - Acute kidney injury [Recovered/Resolved]
  - Hypokalaemia [Unknown]
  - Liver disorder [Unknown]
  - Disseminated intravascular coagulation [Unknown]
  - Chills [Unknown]
  - Hyperfibrinolysis [Unknown]
  - Electrolyte imbalance [Recovering/Resolving]
  - Thyroiditis [Unknown]
  - Cold sweat [Unknown]
  - Systemic inflammatory response syndrome [Recovered/Resolved]
  - Multiple organ dysfunction syndrome [Recovered/Resolved]
  - Thrombocytopenia [Unknown]
  - Hypotension [Unknown]
  - Decreased appetite [Unknown]
  - General physical health deterioration [Unknown]
  - Peripheral swelling [Unknown]
  - Tachycardia [Unknown]
  - Hepatic failure [Recovered/Resolved]
  - Coagulopathy [Unknown]
  - Anaemia [Unknown]
  - Hypophysitis [Unknown]
  - Hypophosphataemia [Unknown]

NARRATIVE: CASE EVENT DATE: 20160806
